FAERS Safety Report 6064198-4 (Version None)
Quarter: 2009Q1

REPORT INFORMATION
  Report Type: 
  Country: None (occurrence: None)
  Receive Date: 20090204
  Receipt Date: 20090202
  Transmission Date: 20090719
  Serious: Yes (Other)
  Sender: FDA-Public Use
  Company Number: IN-BRISTOL-MYERS SQUIBB COMPANY-14479687

PATIENT
  Age: 5 Year
  Sex: Male

DRUGS (1)
  1. AMOXICILLIN [Suspect]

REACTIONS (1)
  - DRUG ERUPTION [None]
